FAERS Safety Report 6100437-9 (Version None)
Quarter: 2009Q1

REPORT INFORMATION
  Report Type: 
  Country: None (occurrence: None)
  Receive Date: 20090227
  Receipt Date: 20090227
  Transmission Date: 20090719
  Serious: Yes (Life-Threatening, Other)
  Sender: FDA-Public Use
  Company Number: None

PATIENT
  Age: 25 Year
  Sex: Female
  Weight: 58.514 kg

DRUGS (1)
  1. MIRENA [Suspect]
     Indication: CONTRACEPTION
     Dates: start: 20060404, end: 20090222

REACTIONS (5)
  - ARTHRALGIA [None]
  - BACK PAIN [None]
  - CRYING [None]
  - MOOD SWINGS [None]
  - SUICIDAL IDEATION [None]
